FAERS Safety Report 6409157-4 (Version None)
Quarter: 2009Q4

REPORT INFORMATION
  Report Type: 
  Country: None (occurrence: None)
  Receive Date: 20091021
  Receipt Date: 20091012
  Transmission Date: 20100525
  Serious: Yes (Other)
  Sender: FDA-Public Use
  Company Number: PHHY2009MX41780

PATIENT
  Sex: Female

DRUGS (4)
  1. DIOVAN HCT [Suspect]
     Indication: HYPERTENSION
     Dosage: 1 DF (160/25 MG)/ DAY
     Route: 048
     Dates: start: 20090628, end: 20090629
  2. DIOVAN HCT [Suspect]
     Dosage: 1 DF (160/25 MG)/ DAY
     Route: 048
     Dates: start: 20090703, end: 20090705
  3. DEBISOR [Concomitant]
     Dosage: 2 TABLETS PER DAY
     Dates: start: 19960701
  4. ZOLIDIME [Concomitant]
     Indication: PAIN

REACTIONS (4)
  - ARTHRALGIA [None]
  - BONE PAIN [None]
  - FEELING ABNORMAL [None]
  - HYPERTENSION [None]
